FAERS Safety Report 9487103 (Version 1)
Quarter: 2013Q3

REPORT INFORMATION
  Report Type: Spontaneous
  Country: GB (occurrence: GB)
  Receive Date: 20130829
  Receipt Date: 20130829
  Transmission Date: 20140515
  Serious: Yes (Hospitalization, Other)
  Sender: FDA-Public Use
  Company Number: GB-PFIZER INC-2013246404

PATIENT
  Age: 48 Year
  Sex: Male

DRUGS (3)
  1. ATORVASTATIN CALCIUM [Suspect]
     Indication: CELLULITIS
     Dosage: 80 MG, 1X/DAY
     Route: 048
     Dates: start: 20100813, end: 20110707
  2. ERYTHROMYCIN [Interacting]
     Indication: CELLULITIS
     Dosage: 500 MG, 2X/DAY
     Route: 048
     Dates: start: 20090707, end: 20110707
  3. RIFAMPICIN [Concomitant]

REACTIONS (4)
  - Blood creatine phosphokinase increased [Recovered/Resolved]
  - Drug interaction [Unknown]
  - General physical health deterioration [Unknown]
  - Off label use [Recovered/Resolved]
